FAERS Safety Report 10436355 (Version 2)
Quarter: 2014Q4

REPORT INFORMATION
  Report Type: Spontaneous
  Country: US (occurrence: US)
  Receive Date: 20140908
  Receipt Date: 20141002
  Transmission Date: 20150528
  Serious: Yes (Hospitalization)
  Sender: FDA-Public Use
  Company Number: US-BEH-2014044768

PATIENT
  Age: 56 Year
  Sex: Male
  Weight: 90 kg

DRUGS (29)
  1. ZEMAIRA [Suspect]
     Active Substance: .ALPHA.1-PROTEINASE INHIBITOR HUMAN
     Indication: EMPHYSEMA
     Route: 042
  2. PRILOSEC [Concomitant]
     Active Substance: OMEPRAZOLE MAGNESIUM
  3. WARFARIN [Concomitant]
     Active Substance: WARFARIN
  4. MEROPENEM. [Concomitant]
     Active Substance: MEROPENEM
  5. AMBIEN [Concomitant]
     Active Substance: ZOLPIDEM TARTRATE
  6. SODIUM CHLORIDE. [Concomitant]
     Active Substance: SODIUM CHLORIDE
  7. OXYGEN. [Concomitant]
     Active Substance: OXYGEN
  8. TUSSIONEX PENNKINETIC [Concomitant]
     Active Substance: CHLORPHENIRAMINE\HYDROCODONE
  9. PREDNISONE. [Concomitant]
     Active Substance: PREDNISONE
  10. LMX [Concomitant]
     Active Substance: LIDOCAINE
  11. ALL OTHER THERAPEUTIC PRODUCTS [Concomitant]
     Active Substance: UNSPECIFIED INGREDIENT
  12. VORICONAZOLE. [Concomitant]
     Active Substance: VORICONAZOLE
  13. AMLODIPINE [Concomitant]
     Active Substance: AMLODIPINE BESYLATE
  14. PRIMAXIN [Concomitant]
     Active Substance: CILASTATIN SODIUM\IMIPENEM
  15. BENZONATATE. [Concomitant]
     Active Substance: BENZONATATE
  16. HEPARIN [Concomitant]
     Active Substance: HEPARIN SODIUM
  17. EPIPEN [Concomitant]
     Active Substance: EPINEPHRINE
  18. AMIKACIN [Concomitant]
     Active Substance: AMIKACIN
  19. PROAIR HFA [Concomitant]
     Active Substance: ALBUTEROL SULFATE
  20. NO DRUG NAME [Concomitant]
  21. ALBUTEROL. [Concomitant]
     Active Substance: ALBUTEROL
  22. ACETYLCYSTEINE. [Concomitant]
     Active Substance: ACETYLCYSTEINE
  23. BUDESONIDE. [Concomitant]
     Active Substance: BUDESONIDE
  24. LASIX [Concomitant]
     Active Substance: FUROSEMIDE
  25. ATROVENT [Concomitant]
     Active Substance: IPRATROPIUM BROMIDE
  26. ZEMAIRA [Suspect]
     Active Substance: .ALPHA.1-PROTEINASE INHIBITOR HUMAN
     Indication: ENZYME ABNORMALITY
     Route: 042
  27. CLOFAZIMINE [Concomitant]
     Active Substance: CLOFAZIMINE
  28. ZEMAIRA [Suspect]
     Active Substance: .ALPHA.1-PROTEINASE INHIBITOR HUMAN
     Indication: ALPHA-1 ANTI-TRYPSIN DEFICIENCY
     Route: 042
  29. DIPHENHYDRAMINE [Concomitant]
     Active Substance: DIPHENHYDRAMINE

REACTIONS (1)
  - Pulmonary embolism [Recovered/Resolved]

NARRATIVE: CASE EVENT DATE: 20140826
